FAERS Safety Report 9345102 (Version 1)
Quarter: 2013Q2

REPORT INFORMATION
  Report Type: Spontaneous
  Country: US (occurrence: US)
  Receive Date: 20130612
  Receipt Date: 20130612
  Transmission Date: 20140414
  Serious: Yes (Life-Threatening, Hospitalization, Other)
  Sender: FDA-Public Use
  Company Number: US-ASTRAZENECA-2013SE42107

PATIENT
  Age: 67 Year
  Sex: Female
  Weight: 78 kg

DRUGS (10)
  1. NEXIUM [Suspect]
     Indication: HIATUS HERNIA
     Route: 048
     Dates: start: 2000, end: 2008
  2. NEXIUM [Suspect]
     Indication: HIATUS HERNIA
     Route: 048
     Dates: start: 2008
  3. PRILOSEC [Suspect]
     Indication: HIATUS HERNIA
     Route: 048
  4. PRILOSEC [Suspect]
     Indication: HIATUS HERNIA
     Dosage: GENERIC
     Route: 065
  5. SEROQUEL [Suspect]
     Indication: BIPOLAR DISORDER
     Route: 048
  6. TOPAMAX [Concomitant]
     Indication: BIPOLAR DISORDER
  7. COZAR [Concomitant]
     Indication: BIPOLAR DISORDER
  8. SINGULAIR [Concomitant]
     Indication: DYSPNOEA
  9. QVAR [Concomitant]
     Indication: DYSPNOEA
  10. PLAQUINAL [Concomitant]
     Indication: AUTOIMMUNE DISORDER

REACTIONS (9)
  - Hiatus hernia, obstructive [Recovered/Resolved]
  - Procedural complication [Unknown]
  - Surgical failure [Unknown]
  - Hiatus hernia [Unknown]
  - Respiratory disorder [Recovered/Resolved]
  - Sjogren^s syndrome [Unknown]
  - Dyspnoea [Unknown]
  - Off label use [Unknown]
  - Drug ineffective for unapproved indication [Unknown]
